FAERS Safety Report 7923540 (Version 3)
Quarter: 2012Q4

REPORT INFORMATION
  Report Type: 
  Country: US (occurrence: US)
  Receive Date: 20110429
  Receipt Date: 20121107
  Transmission Date: 20130627
  Serious: No
  Sender: FDA-Public Use
  Company Number: US-ASTRAZENECA-2010SE37956

PATIENT
  Age: 54 Year
  Sex: Female

DRUGS (4)
  1. NEXIUM [Suspect]
     Route: 048
  2. PRILOSEC OTC [Suspect]
     Route: 048
  3. ANTIBIOTICS [Suspect]
     Route: 065
  4. DICLOFENAC [Concomitant]

REACTIONS (8)
  - Dyspepsia [Unknown]
  - Blood pressure increased [Unknown]
  - Cystitis [Unknown]
  - Drug hypersensitivity [Unknown]
  - Malaise [Unknown]
  - Abdominal discomfort [Unknown]
  - Drug dose omission [Unknown]
  - Drug ineffective [Unknown]
